FAERS Safety Report 4641438-7 (Version None)
Quarter: 2005Q2

REPORT INFORMATION
  Report Type: 
  Country: None (occurrence: None)
  Receive Date: 20050420
  Receipt Date: 20050420
  Transmission Date: 20051028
  Serious: Yes (Life-Threatening)
  Sender: FDA-Public Use
  Company Number: None

PATIENT
  Sex: Male
  Weight: 15.11 kg

DRUGS (4)
  1. MELPHALAN [Suspect]
     Dosage: 70MG/M2  DAILY INTRAVENOUS
     Route: 042
     Dates: start: 20050314, end: 20050317
  2. IMIPENEM [Concomitant]
  3. VANCOMYCIN [Concomitant]
  4. VORICONAZOLE [Concomitant]

REACTIONS (7)
  - DRUG TOXICITY [None]
  - DYSPNOEA [None]
  - FATIGUE [None]
  - PNEUMONITIS [None]
  - PULMONARY HAEMORRHAGE [None]
  - PYREXIA [None]
  - RESPIRATORY FAILURE [None]
